FAERS Safety Report 20626075 (Version 2)
Quarter: 2022Q2

REPORT INFORMATION
  Report Type: Report from Study
  Country: FR (occurrence: None)
  Receive Date: 20220323
  Receipt Date: 20220415
  Transmission Date: 20220720
  Serious: Yes (Other)
  Sender: FDA-Public Use
  Company Number: FR-ROCHE-3056842

PATIENT
  Age: 51 Year
  Sex: Male

DRUGS (10)
  1. ATEZOLIZUMAB [Suspect]
     Active Substance: ATEZOLIZUMAB
     Indication: Non-small cell lung cancer
     Dosage: EVERY 1 CYCLE(S) DAY1 OF CYCLE OF 21 DAYS THE MOST LAST RECENT DOSE WAS ON 13/SEP/2021
     Route: 042
     Dates: start: 20210823, end: 20210913
  2. BEVACIZUMAB [Suspect]
     Active Substance: BEVACIZUMAB
     Indication: Non-small cell lung cancer
     Dosage: EVERY 1 CYCLE(S) DAY1 OF CYCLE OF 21 DAYS THE MOST LAST RECENT DOSE WAS 23/AUG/2021
     Route: 042
     Dates: start: 20210823, end: 20210823
  3. BEVACIZUMAB [Suspect]
     Active Substance: BEVACIZUMAB
     Dosage: EVERY 1 CYCLE(S) DAY1 OF CYCLE OF 21 DAYS THE MOST LAST RECENT DOSE WAS 13/SEP/2021
     Route: 042
     Dates: start: 20210913, end: 20210913
  4. PEMETREXED [Concomitant]
     Active Substance: PEMETREXED
     Indication: Non-small cell lung cancer
     Dosage: EVERY 1 CYCLE(S) DAY1 OF CYCLE OF 21 DAYS
     Route: 042
     Dates: start: 20210823, end: 20210823
  5. PEMETREXED [Concomitant]
     Active Substance: PEMETREXED
     Dosage: EVERY 1 CYCLE(S) DAY1 OF CYCLE OF 21 DAYS
     Route: 042
     Dates: start: 20210913, end: 20210913
  6. CISPLATIN [Concomitant]
     Active Substance: CISPLATIN
     Indication: Non-small cell lung cancer
     Dosage: EVERY 1 CYCLE(S) DAY1 OF CYCLE OF 21 DAYS
     Route: 042
     Dates: start: 20210823, end: 20210823
  7. CISPLATIN [Concomitant]
     Active Substance: CISPLATIN
     Dosage: EVERY 1 CYCLE(S) DAY1 OF CYCLE OF 21 DAYS
     Route: 042
     Dates: start: 20210913, end: 20210913
  8. SERETIDE [Concomitant]
     Active Substance: FLUTICASONE PROPIONATE\SALMETEROL XINAFOATE
     Indication: Asthma
  9. MONTELUKAST [Concomitant]
     Active Substance: MONTELUKAST SODIUM
     Indication: Asthma
     Dosage: EVERY 1 DAYS
     Route: 048
  10. LISINOPRIL [Concomitant]
     Active Substance: LISINOPRIL
     Indication: Hypertension
     Dosage: EVERY 1 DAYS
     Route: 048

REACTIONS (1)
  - Cerebral thrombosis [Unknown]

NARRATIVE: CASE EVENT DATE: 20211004
